FAERS Safety Report 4899748-4 (Version None)
Quarter: 2006Q1

REPORT INFORMATION
  Report Type: 
  Country: None (occurrence: None)
  Receive Date: 20060118
  Receipt Date: 20050809
  Transmission Date: 20060701
  Serious: No
  Sender: FDA-Public Use
  Company Number: 2005001585

PATIENT
  Age: 78 Year
  Sex: Male
  Weight: 50.8029 kg

DRUGS (4)
  1. TARCEVA [Suspect]
     Indication: LUNG NEOPLASM MALIGNANT
     Dosage: 150 MG (QD), ORAL
     Route: 048
  2. VICODIN [Concomitant]
  3. ALEVE [Concomitant]
  4. TYLENOL (CAPLET) [Concomitant]

REACTIONS (2)
  - CHILLS [None]
  - FATIGUE [None]
